FAERS Safety Report 7983086-7 (Version None)
Quarter: 2011Q4

REPORT INFORMATION
  Report Type: 
  Country: None (occurrence: None)
  Receive Date: 20111215
  Receipt Date: 20111213
  Transmission Date: 20120403
  Serious: Yes (Hospitalization)
  Sender: FDA-Public Use
  Company Number: FR-B.I. PHARMACEUTICALS,INC./RIDGEFIELD-2011-FF-00092FF

PATIENT
  Sex: Female
  Weight: 73 kg

DRUGS (5)
  1. AMLODIPINE BESYLATE [Concomitant]
     Dosage: 5 MG
     Route: 048
     Dates: start: 20110125
  2. TRAMADOL HCL [Concomitant]
     Dosage: 300 MG
     Route: 048
     Dates: start: 20110126
  3. ACETAMINOPHEN [Concomitant]
     Dosage: 3000 MG
     Route: 048
     Dates: start: 20110126
  4. ATORVASTATIN CALCIUM [Concomitant]
     Route: 048
     Dates: start: 20110125
  5. PRADAXA [Suspect]
     Indication: THROMBOSIS PROPHYLAXIS
     Dosage: 150 MG
     Route: 048
     Dates: start: 20110125, end: 20110130

REACTIONS (2)
  - DEEP VEIN THROMBOSIS [None]
  - THROMBOPHLEBITIS SUPERFICIAL [None]
